FAERS Safety Report 7774320-7 (Version None)
Quarter: 2011Q3

REPORT INFORMATION
  Report Type: 
  Country: None (occurrence: None)
  Receive Date: 20110923
  Receipt Date: 20110915
  Transmission Date: 20111222
  Serious: Yes (Hospitalization, Other)
  Sender: FDA-Public Use
  Company Number: GB-MPIJNJ-2011-04186

PATIENT

DRUGS (3)
  1. VELCADE [Suspect]
     Dosage: 2.6 MG, UNK
     Route: 058
     Dates: start: 20110831
  2. VELCADE [Suspect]
     Indication: MULTIPLE MYELOMA
     Dosage: 2.6 MG, UNK
     Route: 042
     Dates: start: 20110607
  3. ZOMETA [Concomitant]
     Indication: MULTIPLE MYELOMA
     Dosage: UNK

REACTIONS (3)
  - INTERVERTEBRAL DISC DEGENERATION [None]
  - NEUROPATHY PERIPHERAL [None]
  - OFF LABEL USE [None]
